FAERS Safety Report 4313279-1 (Version None)
Quarter: 2004Q1

REPORT INFORMATION
  Report Type: 
  Country: None (occurrence: None)
  Receive Date: 20040305
  Receipt Date: 20040305
  Transmission Date: 20041129
  Serious: Yes (Life-Threatening, Hospitalization)
  Sender: FDA-Public Use
  Company Number: None

PATIENT
  Sex: Male
  Weight: 66 kg

DRUGS (2)
  1. ARA-C, 3000 MG /M2 EVERY 12 HR X 8 [Suspect]
     Indication: ACUTE MYELOID LEUKAEMIA
     Dosage: 3000 MG /M2  X  8~Q 12
  2. ASPARINGASE 6000 U-/M2 X 2 [Suspect]
     Dosage: 6000 U/M2 X 2 X 1

REACTIONS (3)
  - ALPHA HAEMOLYTIC STREPTOCOCCAL INFECTION [None]
  - RESPIRATORY FAILURE [None]
  - SEPTIC SHOCK [None]
